FAERS Safety Report 5303769-7 (Version None)
Quarter: 2007Q2

REPORT INFORMATION
  Report Type: 
  Country: None (occurrence: None)
  Receive Date: 20070420
  Receipt Date: 20070413
  Transmission Date: 20071010
  Serious: Yes (Hospitalization)
  Sender: FDA-Public Use
  Company Number: US-AMGEN-STX195602

PATIENT
  Sex: Female

DRUGS (15)
  1. ENBREL [Suspect]
     Indication: RHEUMATOID ARTHRITIS
     Route: 058
     Dates: start: 20040415
  2. PREDNISONE TAB [Concomitant]
  3. PREVACID [Concomitant]
  4. HYDROCHLOROTHIAZIDE [Concomitant]
  5. FOSAMAX [Concomitant]
  6. CLARITIN [Concomitant]
  7. TOPROL-XL [Concomitant]
  8. SEREVENT [Concomitant]
  9. FLOVENT [Concomitant]
  10. LIPITOR [Concomitant]
  11. FLEXERIL [Concomitant]
  12. DARVOCET-N 100 [Concomitant]
  13. THEOPHYLLINE [Concomitant]
  14. LISINOPRIL [Concomitant]
  15. ASPIRIN [Concomitant]

REACTIONS (6)
  - BASEDOW'S DISEASE [None]
  - CATARACT OPERATION [None]
  - CHEST PAIN [None]
  - RENAL ARTERY STENT PLACEMENT [None]
  - SLEEP APNOEA SYNDROME [None]
  - VITRECTOMY [None]
